FAERS Safety Report 21078437 (Version 1)
Quarter: 2022Q3

REPORT INFORMATION
  Report Type: Other
  Country: None (occurrence: ES)
  Receive Date: 20220713
  Receipt Date: 20220713
  Transmission Date: 20221027
  Serious: Yes (Hospitalization, Other)
  Sender: FDA-Public Use
  Company Number: ES-Breckenridge Pharmaceutical, Inc.-2130828

PATIENT
  Age: 28 Year
  Sex: Male

DRUGS (3)
  1. LEVETIRACETAM [Suspect]
     Active Substance: LEVETIRACETAM
     Indication: Seizure
     Route: 042
  2. DIAZEPAM [Concomitant]
     Active Substance: DIAZEPAM
  3. MIDAZOLAM [Concomitant]
     Active Substance: MIDAZOLAM

REACTIONS (3)
  - Blood creatine phosphokinase increased [Recovered/Resolved]
  - Acute kidney injury [Unknown]
  - Proteinuria [Unknown]
